FAERS Safety Report 17082077 (Version 3)
Quarter: 2020Q1

REPORT INFORMATION
  Report Type: Report from Study
  Country: US (occurrence: US)
  Receive Date: 20191127
  Receipt Date: 20200129
  Transmission Date: 20200409
  Serious: Yes (Hospitalization)
  Sender: FDA-Public Use
  Company Number: US-BIOGEN-2019BI00809003

PATIENT
  Sex: Female

DRUGS (2)
  1. TYSABRI [Suspect]
     Active Substance: NATALIZUMAB
     Indication: MULTIPLE SCLEROSIS
     Route: 065
     Dates: start: 20190307, end: 20190703
  2. TYSABRI [Suspect]
     Active Substance: NATALIZUMAB
     Route: 065
     Dates: start: 20190827, end: 20191022

REACTIONS (9)
  - Malaise [Recovered/Resolved]
  - Coeliac disease [Not Recovered/Not Resolved]
  - Dizziness [Recovered/Resolved]
  - Herpes zoster oticus [Recovered/Resolved]
  - Nasal herpes [Recovered/Resolved]
  - Oral herpes [Recovered/Resolved]
  - Gastrointestinal disorder [Unknown]
  - Balance disorder [Recovered/Resolved]
  - Herpes ophthalmic [Recovered/Resolved]

NARRATIVE: CASE EVENT DATE: 2019
